FAERS Safety Report 7581502-6 (Version None)
Quarter: 2011Q2

REPORT INFORMATION
  Report Type: 
  Country: None (occurrence: None)
  Receive Date: 20110629
  Receipt Date: 20110620
  Transmission Date: 20111010
  Serious: Yes (Hospitalization)
  Sender: FDA-Public Use
  Company Number: DK-AMGEN-DNKCT2011024237

PATIENT
  Age: 79 Year
  Sex: Female

DRUGS (9)
  1. KININ [Concomitant]
     Dosage: 200 MG, QD
     Route: 048
     Dates: start: 20020101
  2. BETOLVEX [Concomitant]
     Dosage: 1 MG/ML, QWK
     Route: 030
     Dates: start: 20080126
  3. INDAPAMIDE [Concomitant]
     Dosage: SUNK
     Route: 048
     Dates: start: 20020101
  4. PAMOL [Concomitant]
     Dosage: 1 G, PRN
     Route: 048
     Dates: start: 20000101
  5. CALCIUM CARBONATE [Concomitant]
     Dosage: UNK UNK, BID
     Route: 048
     Dates: start: 20050412
  6. DENOSUMAB [Suspect]
     Indication: OSTEOPOROSIS POSTMENOPAUSAL
     Dosage: 1 ML, Q6MO
     Route: 058
     Dates: start: 20080410
  7. AMLODIPINE [Concomitant]
     Dosage: 10 MG, QD
     Route: 048
     Dates: start: 20050418
  8. SIMVASTATIN [Concomitant]
     Dosage: 10 MG, QD
     Route: 048
     Dates: start: 20060110
  9. VITAMIN D [Concomitant]
     Dosage: UNK UNK, BID
     Route: 048
     Dates: start: 20050412

REACTIONS (1)
  - GASTRIC ULCER [None]
